FAERS Safety Report 8340701-6 (Version None)
Quarter: 2012Q2

REPORT INFORMATION
  Report Type: 
  Country: None (occurrence: None)
  Receive Date: 20120507
  Receipt Date: 20120426
  Transmission Date: 20120825
  Serious: Yes (Hospitalization)
  Sender: FDA-Public Use
  Company Number: US-BIOGENIDEC-2012BI008639

PATIENT
  Sex: Female

DRUGS (4)
  1. TYSABRI [Suspect]
     Indication: MULTIPLE SCLEROSIS
     Route: 042
     Dates: start: 20090127
  2. LUNESTA [Concomitant]
     Indication: INSOMNIA
     Route: 048
  3. VALTREX [Concomitant]
  4. KLONOPIN [Concomitant]
     Indication: ANXIETY
     Route: 048

REACTIONS (3)
  - DEPRESSION [None]
  - ANXIETY [None]
  - PANIC ATTACK [None]
